FAERS Safety Report 5522359-4 (Version None)
Quarter: 2007Q4

REPORT INFORMATION
  Report Type: 
  Country: None (occurrence: None)
  Receive Date: 20071120
  Receipt Date: 20071108
  Transmission Date: 20080405
  Serious: No
  Sender: FDA-Public Use
  Company Number: JP-ELI_LILLY_AND_COMPANY-JP200709002756

PATIENT
  Sex: Female
  Weight: 32 kg

DRUGS (4)
  1. EVISTA [Suspect]
     Indication: OSTEOPOROSIS
     Dosage: 60 MG, DAILY (1/D)
     Route: 048
     Dates: start: 20070517, end: 20070806
  2. ALFAROL [Concomitant]
     Indication: OSTEOPOROSIS
     Dosage: 0.5 UG, DAILY (1/D)
     Route: 048
     Dates: start: 19961029
  3. HYPEN [Concomitant]
     Indication: SPINAL COMPRESSION FRACTURE
     Dosage: 200 MG, 2/D
     Route: 048
     Dates: start: 20061221
  4. SELBEX [Concomitant]
     Indication: SPINAL COMPRESSION FRACTURE
     Dosage: 50 MG, 2/D
     Route: 048
     Dates: start: 20061221

REACTIONS (2)
  - OEDEMA PERIPHERAL [None]
  - RETINAL VEIN OCCLUSION [None]
